FAERS Safety Report 19744562 (Version 1)
Quarter: 2021Q3

REPORT INFORMATION
  Report Type: Spontaneous
  Country: US (occurrence: US)
  Receive Date: 20210823
  Receipt Date: 20210823
  Transmission Date: 20211014
  Serious: Yes (Other)
  Sender: FDA-Public Use
  Company Number: None

PATIENT
  Age: 1 Week
  Sex: Female
  Weight: 2.8 kg

DRUGS (1)
  1. HYDROXYPROGESTERONE CAPROATE. [Suspect]
     Active Substance: HYDROXYPROGESTERONE CAPROATE
     Indication: PREMATURE LABOUR
     Dosage: ?          QUANTITY:15 INJECTION(S);OTHER FREQUENCY:ONCE PER WEEK;?
     Route: 030
     Dates: start: 20210315, end: 20210628

REACTIONS (2)
  - Vaginal haemorrhage [None]
  - Maternal drugs affecting foetus [None]

NARRATIVE: CASE EVENT DATE: 20210807
